FAERS Safety Report 5106266-7 (Version None)
Quarter: 2006Q3

REPORT INFORMATION
  Report Type: 
  Country: None (occurrence: None)
  Receive Date: 20060918
  Receipt Date: 20060907
  Transmission Date: 20061208
  Serious: Yes (Other)
  Sender: FDA-Public Use
  Company Number: BR-JNJFOC-20060902228

PATIENT
  Age: 36 Year
  Sex: Male
  Weight: 93 kg

DRUGS (3)
  1. TYLENOL (CAPLET) [Suspect]
     Route: 048
  2. TYLENOL (CAPLET) [Suspect]
     Indication: SUICIDE ATTEMPT
     Route: 048
  3. DIPYRINE/ORPHENADRINE [Suspect]
     Indication: SUICIDE ATTEMPT
     Dosage: UNKNOWN

REACTIONS (2)
  - INTENTIONAL DRUG MISUSE [None]
  - SUICIDE ATTEMPT [None]
